FAERS Safety Report 14731475 (Version 7)
Quarter: 2018Q3

REPORT INFORMATION
  Report Type: Spontaneous
  Country: FR (occurrence: FR)
  Receive Date: 20180407
  Receipt Date: 20180903
  Transmission Date: 20181010
  Serious: Yes (Hospitalization, Other)
  Sender: FDA-Public Use
  Company Number: FR-AUROBINDO-AUR-APL-2018-019096

PATIENT
  Age: 67 Year
  Sex: Male

DRUGS (13)
  1. GENTAMICIN. [Suspect]
     Active Substance: GENTAMICIN
     Dosage: ()
     Route: 042
  2. DAPTOMYCIN. [Suspect]
     Active Substance: DAPTOMYCIN
     Indication: STAPHYLOCOCCAL INFECTION
     Dosage: 6 MG/KG, QD
     Route: 065
  3. CIPROFLOXACIN. [Suspect]
     Active Substance: CIPROFLOXACIN
     Indication: STAPHYLOCOCCAL INFECTION
     Dosage: UNK
     Route: 065
  4. GENTAMICIN. [Suspect]
     Active Substance: GENTAMICIN
     Indication: STAPHYLOCOCCAL INFECTION
     Dosage: UNK
     Route: 042
  5. VANCOMYCIN HYDROCHLORIDE. [Suspect]
     Active Substance: VANCOMYCIN HYDROCHLORIDE
     Indication: STAPHYLOCOCCAL INFECTION
     Dosage: UNK
     Route: 042
  6. GENTAMICIN. [Suspect]
     Active Substance: GENTAMICIN
     Indication: STAPHYLOCOCCAL INFECTION
     Dosage: ()
  7. OXACILLIN [Suspect]
     Active Substance: OXACILLIN SODIUM
     Indication: STAPHYLOCOCCAL INFECTION
     Dosage: UNK
     Route: 042
  8. DAPTOMYCIN. [Suspect]
     Active Substance: DAPTOMYCIN
     Indication: STAPHYLOCOCCAL INFECTION
     Dosage: 6 MG/KG, UNK
     Route: 042
  9. CIPROFLOXACIN. [Suspect]
     Active Substance: CIPROFLOXACIN
     Dosage: ()
  10. DAPTOMYCIN. [Suspect]
     Active Substance: DAPTOMYCIN
  11. CIPROFLOXACIN. [Suspect]
     Active Substance: CIPROFLOXACIN
     Indication: STAPHYLOCOCCAL INFECTION
     Dosage: ()
     Route: 042
  12. VANCOMYCIN HYDROCHLORIDE. [Suspect]
     Active Substance: VANCOMYCIN HYDROCHLORIDE
     Indication: STAPHYLOCOCCAL INFECTION
     Dosage: ()
     Route: 042
  13. VANCOMYCIN HYDROCHLORIDE. [Suspect]
     Active Substance: VANCOMYCIN HYDROCHLORIDE
     Dosage: ()

REACTIONS (3)
  - Acute kidney injury [Recovering/Resolving]
  - Eosinophilic pneumonia acute [Recovered/Resolved]
  - Lip swelling [Unknown]
